FAERS Safety Report 15202613 (Version 1)
Quarter: 2018Q3

REPORT INFORMATION
  Report Type: Spontaneous
  Country: US (occurrence: US)
  Receive Date: 20180726
  Receipt Date: 20180726
  Transmission Date: 20181010
  Serious: Yes (Hospitalization, Other)
  Sender: FDA-Public Use
  Company Number: US-PURACAP PHARMACEUTICAL LLC-2018EPC00349

PATIENT
  Age: 13 Year
  Sex: Female

DRUGS (2)
  1. NAPROXEN SODIUM. [Suspect]
     Active Substance: NAPROXEN SODIUM
     Indication: JUVENILE IDIOPATHIC ARTHRITIS
     Dosage: UNK UNK, 2X/DAY
     Route: 065
  2. ESOMEPRAZOLE [Suspect]
     Active Substance: ESOMEPRAZOLE
     Indication: JUVENILE IDIOPATHIC ARTHRITIS
     Dosage: 20 MG, 2X/DAY
     Route: 065

REACTIONS (2)
  - Biliary cirrhosis [Recovered/Resolved]
  - Hepatitis [Recovered/Resolved]
